FAERS Safety Report 9001339 (Version 1)
Quarter: 2013Q1

REPORT INFORMATION
  Report Type: Spontaneous
  Country: IT (occurrence: IT)
  Receive Date: 20130107
  Receipt Date: 20130107
  Transmission Date: 20140127
  Serious: Yes (Hospitalization)
  Sender: FDA-Public Use
  Company Number: IT-MYLANLABS-2013S1000059

PATIENT
  Age: 70 Year
  Sex: Female

DRUGS (7)
  1. LOSARTAN [Suspect]
     Indication: HYPERTENSION
     Route: 048
     Dates: start: 20000101, end: 20121127
  2. FUROSEMIDE [Interacting]
     Indication: HYPERTENSION
     Route: 048
     Dates: start: 20000101, end: 20121127
  3. SPIRONOLACTONE [Interacting]
     Indication: HYPERTENSION
     Route: 048
     Dates: start: 20000101, end: 20121127
  4. CARDIOASPIRIN [Concomitant]
     Indication: PRODUCT USED FOR UNKNOWN INDICATION
  5. ALLOPURINOL [Concomitant]
     Indication: GOUTY ARTHRITIS
  6. SIMVASTATIN [Concomitant]
     Indication: DYSLIPIDAEMIA
  7. PREGABALIN [Concomitant]
     Indication: NEURALGIA

REACTIONS (4)
  - Drug interaction [Recovered/Resolved]
  - Hyperkalaemia [Recovered/Resolved]
  - Bradycardia [Recovered/Resolved]
  - Syncope [Recovered/Resolved]
